FAERS Safety Report 7726071-2 (Version None)
Quarter: 2011Q3

REPORT INFORMATION
  Report Type: 
  Country: None (occurrence: None)
  Receive Date: 20110831
  Receipt Date: 20110818
  Transmission Date: 20111222
  Serious: Yes (Other)
  Sender: FDA-Public Use
  Company Number: 2011AP001712

PATIENT
  Age: 22 Year
  Sex: Female

DRUGS (1)
  1. CETIRIZINE HYDROCHLORIDE [Suspect]
     Indication: ALLERGIC SINUSITIS
     Dosage: 10 MG;QD

REACTIONS (6)
  - FACIAL PARESIS [None]
  - DYSPHONIA [None]
  - JAW DISORDER [None]
  - DIPLOPIA [None]
  - MYASTHENIA GRAVIS [None]
  - APHASIA [None]
